FAERS Safety Report 6824187-6 (Version None)
Quarter: 2010Q3

REPORT INFORMATION
  Report Type: 
  Country: None (occurrence: None)
  Receive Date: 20100708
  Receipt Date: 20070425
  Transmission Date: 20110219
  Serious: Yes (Hospitalization, Other)
  Sender: FDA-Public Use
  Company Number: US-PFIZER INC-2006114027

PATIENT
  Sex: Male
  Weight: 68 kg

DRUGS (12)
  1. CHANTIX [Suspect]
     Indication: SMOKING CESSATION THERAPY
     Route: 048
     Dates: start: 20060901
  2. FLOMAX [Concomitant]
     Indication: PROSTATIC DISORDER
     Route: 048
  3. METOPROLOL [Concomitant]
     Route: 048
  4. COENZYME Q10 [Concomitant]
     Indication: MUSCLE DISORDER
     Route: 048
  5. SAW PALMETTO [Concomitant]
     Route: 048
  6. VYTORIN [Concomitant]
     Route: 048
  7. AVODART [Concomitant]
     Indication: PROSTATIC DISORDER
     Route: 048
  8. RANITIDINE [Concomitant]
     Route: 048
  9. VITAMINS [Concomitant]
  10. MONTELUKAST SODIUM [Concomitant]
     Indication: UPPER-AIRWAY COUGH SYNDROME
     Route: 048
     Dates: start: 20060825
  11. ACETYLSALICYLIC ACID [Concomitant]
  12. DIOVAN [Concomitant]

REACTIONS (5)
  - DECREASED APPETITE [None]
  - HAEMORRHAGE [None]
  - MALAISE [None]
  - NAUSEA [None]
  - PROSTATECTOMY [None]
